FAERS Safety Report 17818489 (Version 2)
Quarter: 2020Q2

REPORT INFORMATION
  Report Type: Report from Study
  Country: CA (occurrence: CA)
  Receive Date: 20200522
  Receipt Date: 20200609
  Transmission Date: 20200714
  Serious: Yes (Hospitalization, Other)
  Sender: FDA-Public Use
  Company Number: PHHY2016CA120249

PATIENT
  Age: 52 Year
  Sex: Female

DRUGS (5)
  1. METRONIDAZOLE. [Suspect]
     Active Substance: METRONIDAZOLE
     Indication: LOCALISED INFECTION
     Dosage: 250 MG, BID
     Route: 065
     Dates: start: 20191001, end: 20191003
  2. LUTETIUM (LU 177) [Suspect]
     Active Substance: LUTETIUM LU-177
     Indication: PRODUCT USED FOR UNKNOWN INDICATION
     Route: 065
  3. SANDOSTATIN LAR DEPOT [Suspect]
     Active Substance: OCTREOTIDE ACETATE
     Indication: CARCINOID TUMOUR OF THE SMALL BOWEL
     Dosage: 30 MG, QMO
     Route: 030
     Dates: start: 20160728
  4. SODIUM BICARBONATE. [Suspect]
     Active Substance: SODIUM BICARBONATE
     Indication: LOCALISED INFECTION
     Dosage: 2 DF (325 MG), QD (UNTILL FINISHED)
     Route: 065
     Dates: start: 20191001
  5. DOXYCYCLINE. [Suspect]
     Active Substance: DOXYCYCLINE
     Indication: LOCALISED INFECTION
     Dosage: 100 MG, BID (UNTIL FINISHED)
     Route: 065
     Dates: start: 20191001

REACTIONS (12)
  - Renal failure [Not Recovered/Not Resolved]
  - Lower respiratory tract infection [Recovered/Resolved]
  - Blood pressure increased [Unknown]
  - Localised infection [Unknown]
  - Abdominal pain upper [Unknown]
  - Injection site pain [Unknown]
  - Infected cyst [Unknown]
  - Body temperature increased [Unknown]
  - Injection site swelling [Unknown]
  - Aphonia [Recovering/Resolving]
  - Needle issue [Unknown]
  - Amnesia [Unknown]

NARRATIVE: CASE EVENT DATE: 20160827
